FAERS Safety Report 4427761-X (Version None)
Quarter: 2004Q3

REPORT INFORMATION
  Report Type: 
  Country: None (occurrence: None)
  Receive Date: 20040817
  Receipt Date: 20040811
  Transmission Date: 20050211
  Serious: Yes (Life-Threatening, Hospitalization)
  Sender: FDA-Public Use
  Company Number: ES-BRISTOL-MYERS SQUIBB COMPANY-12669230

PATIENT
  Age: 55 Year
  Sex: Female

DRUGS (2)
  1. TAXOL [Suspect]
     Indication: LUNG CARCINOMA CELL TYPE UNSPECIFIED STAGE III
     Route: 042
     Dates: start: 20040801, end: 20040801
  2. CARBOPLATIN [Concomitant]
     Indication: LUNG CARCINOMA CELL TYPE UNSPECIFIED STAGE III
     Dosage: AUC 6

REACTIONS (1)
  - CARDIAC ARREST [None]
